FAERS Safety Report 6541827-X (Version None)
Quarter: 2010Q1

REPORT INFORMATION
  Report Type: 
  Country: None (occurrence: None)
  Receive Date: 20100119
  Receipt Date: 20100115
  Transmission Date: 20100710
  Serious: Yes (Death, Hospitalization)
  Sender: FDA-Public Use
  Company Number: PHHY2010CA01416

PATIENT
  Sex: Female

DRUGS (1)
  1. ACLASTA [Suspect]
     Indication: OSTEOPOROSIS
     Dosage: UNK
     Dates: start: 20090119

REACTIONS (7)
  - DEATH [None]
  - DIVERTICULITIS [None]
  - INTESTINAL ISCHAEMIA [None]
  - INTESTINAL MASS [None]
  - INTESTINAL OPERATION [None]
  - INTESTINAL PERFORATION [None]
  - PROCEDURAL PAIN [None]
